FAERS Safety Report 4371341-1 (Version None)
Quarter: 2004Q2

REPORT INFORMATION
  Report Type: 
  Country: None (occurrence: None)
  Receive Date: 20040603
  Receipt Date: 20040520
  Transmission Date: 20050107
  Serious: Yes (Death)
  Sender: FDA-Public Use
  Company Number: HQWYE068121MAY04

PATIENT
  Sex: Female

DRUGS (1)
  1. PREMARIN [Suspect]
     Dosage: ORAL
     Route: 048

REACTIONS (1)
  - CARCINOMA [None]
